FAERS Safety Report 8580298-9 (Version None)
Quarter: 2012Q3

REPORT INFORMATION
  Report Type: 
  Country: None (occurrence: None)
  Receive Date: 20120808
  Receipt Date: 20120730
  Transmission Date: 20120928
  Serious: Yes (Other)
  Sender: FDA-Public Use
  Company Number: US-PFIZER INC-2012184841

PATIENT
  Age: 62 Year
  Sex: Female
  Weight: 48.98 kg

DRUGS (4)
  1. ESTROVEN [Concomitant]
     Dosage: UNK
  2. TOVIAZ [Suspect]
     Indication: HYPERTONIC BLADDER
     Dosage: 4 MG, 1X/DAY
     Route: 048
     Dates: start: 20120725
  3. MAXZIDE [Concomitant]
     Indication: HYPERTENSION
     Dosage: UNK
  4. CLARITIN [Concomitant]
     Dosage: UNK

REACTIONS (8)
  - HYPOAESTHESIA [None]
  - DIZZINESS [None]
  - DRY MOUTH [None]
  - CONFUSIONAL STATE [None]
  - ORAL DISCOMFORT [None]
  - HYPOAESTHESIA ORAL [None]
  - FEELING ABNORMAL [None]
  - CONSTIPATION [None]
